FAERS Safety Report 19850038 (Version 1)
Quarter: 2021Q3

REPORT INFORMATION
  Report Type: Spontaneous
  Country: CN (occurrence: CN)
  Receive Date: 20210917
  Receipt Date: 20210917
  Transmission Date: 20211014
  Serious: Yes (Hospitalization, Other)
  Sender: FDA-Public Use
  Company Number: CN-009507513-2109CHN003940

PATIENT
  Age: 80 Year
  Sex: Male
  Weight: 70 kg

DRUGS (1)
  1. KEYTRUDA [Suspect]
     Active Substance: PEMBROLIZUMAB
     Indication: LUNG NEOPLASM MALIGNANT
     Dosage: DOSE: 100 MG, FREQUENCY: ONCE
     Route: 041
     Dates: start: 20210824, end: 20210824

REACTIONS (8)
  - Chest discomfort [Unknown]
  - Blood creatinine increased [Unknown]
  - Asphyxia [Unknown]
  - Cardiomyopathy [Recovering/Resolving]
  - Underdose [Unknown]
  - Expired product administered [Unknown]
  - Wheezing [Unknown]
  - Malignant neoplasm progression [Unknown]

NARRATIVE: CASE EVENT DATE: 20210824
